FAERS Safety Report 5676419-8 (Version None)
Quarter: 2008Q1

REPORT INFORMATION
  Report Type: 
  Country: None (occurrence: None)
  Receive Date: 20080321
  Receipt Date: 20080311
  Transmission Date: 20080703
  Serious: Yes (Other)
  Sender: FDA-Public Use
  Company Number: DE-PFIZER INC-2008025332

PATIENT
  Sex: Female

DRUGS (2)
  1. HYDROXYZINE HYDROCHLORIDE [Suspect]
     Dosage: DAILY DOSE:200MG-FREQ:ONCE
     Route: 048
     Dates: start: 20080311, end: 20080311
  2. MEDIKINET [Suspect]
     Dosage: DAILY DOSE:40MG-FREQ:ONCE
     Route: 048
     Dates: start: 20080311, end: 20080311

REACTIONS (2)
  - FATIGUE [None]
  - SUICIDE ATTEMPT [None]
